FAERS Safety Report 18023825 (Version 1)
Quarter: 2020Q3

REPORT INFORMATION
  Report Type: Spontaneous
  Country: ES (occurrence: ES)
  Receive Date: 20200715
  Receipt Date: 20200715
  Transmission Date: 20201103
  Serious: Yes (Hospitalization, Other)
  Sender: FDA-Public Use
  Company Number: ES-SA-2020SA179017

PATIENT

DRUGS (2)
  1. RIFATER [Suspect]
     Active Substance: ISONIAZID\PYRAZINAMIDE\RIFAMPIN
     Dosage: UNK
     Dates: start: 201912, end: 202002
  2. RIFINAH [Suspect]
     Active Substance: ISONIAZID\RIFAMPIN
     Dosage: UNK
     Dates: start: 201902, end: 202002

REACTIONS (1)
  - Acute hepatic failure [Unknown]

NARRATIVE: CASE EVENT DATE: 202002
